FAERS Safety Report 21286157 (Version 2)
Quarter: 2022Q3

REPORT INFORMATION
  Report Type: Spontaneous
  Country: BR (occurrence: BR)
  Receive Date: 20220902
  Receipt Date: 20220920
  Transmission Date: 20221026
  Serious: Yes (Other)
  Sender: FDA-Public Use
  Company Number: BR-BAYER-2022A120331

PATIENT
  Age: 32 Year
  Sex: Female

DRUGS (5)
  1. MIRENA [Suspect]
     Active Substance: LEVONORGESTREL
     Indication: Heavy menstrual bleeding
     Dosage: 20?G/DAY
     Route: 015
     Dates: start: 20190816, end: 20200602
  2. ISONIAZID [Concomitant]
     Active Substance: ISONIAZID
     Indication: Pulmonary tuberculosis
     Dosage: UNK
     Dates: start: 20190905, end: 202002
  3. RIFAMPIN [Concomitant]
     Active Substance: RIFAMPIN
     Indication: Pulmonary tuberculosis
     Dosage: UNK
     Dates: start: 20190905, end: 202002
  4. PYRAZINAMIDE [Concomitant]
     Active Substance: PYRAZINAMIDE
     Indication: Pulmonary tuberculosis
     Dosage: UNK
     Dates: start: 20190905, end: 201911
  5. ETHAMBUTOL [Concomitant]
     Active Substance: ETHAMBUTOL HYDROCHLORIDE
     Indication: Pulmonary tuberculosis
     Dosage: UNK
     Dates: start: 20190905, end: 201911

REACTIONS (32)
  - Suicidal ideation [None]
  - Limb discomfort [None]
  - Joint swelling [None]
  - Depersonalisation/derealisation disorder [None]
  - Panic attack [Recovering/Resolving]
  - Claustrophobia [None]
  - Tinnitus [None]
  - Sensation of blood flow [None]
  - Eye pain [None]
  - Strabismus [None]
  - Feeling abnormal [None]
  - Urticaria [None]
  - Pruritus [None]
  - Insomnia [None]
  - Dizziness [Recovering/Resolving]
  - Nausea [None]
  - Vision blurred [None]
  - Headache [Recovering/Resolving]
  - Hypoaesthesia [None]
  - Muscle spasms [None]
  - Chills [None]
  - Dyspepsia [Recovering/Resolving]
  - Fatigue [None]
  - Bromhidrosis [None]
  - Acne cystic [Recovering/Resolving]
  - Head discomfort [None]
  - Balance disorder [None]
  - Intermenstrual bleeding [None]
  - Device issue [Recovered/Resolved]
  - Complication of device removal [Recovered/Resolved]
  - Tachycardia [None]
  - Scar [Not Recovered/Not Resolved]

NARRATIVE: CASE EVENT DATE: 20191101
